FAERS Safety Report 7365408-3 (Version None)
Quarter: 2011Q1

REPORT INFORMATION
  Report Type: 
  Country: None (occurrence: None)
  Receive Date: 20110322
  Receipt Date: 20091124
  Transmission Date: 20110831
  Serious: No
  Sender: FDA-Public Use
  Company Number: 2009BI038781

PATIENT
  Age: 56 Year
  Sex: Male

DRUGS (1)
  1. TYSABRI [Suspect]
     Indication: MULTIPLE SCLEROSIS
     Route: 042
     Dates: start: 20070809

REACTIONS (6)
  - PAIN [None]
  - CHEST PAIN [None]
  - WEIGHT INCREASED [None]
  - FATIGUE [None]
  - EYE PAIN [None]
  - GAIT DISTURBANCE [None]
